FAERS Safety Report 8071749-7 (Version None)
Quarter: 2012Q1

REPORT INFORMATION
  Report Type: 
  Country: None (occurrence: None)
  Receive Date: 20120125
  Receipt Date: 20120124
  Transmission Date: 20120608
  Serious: Yes (Hospitalization, Disabling)
  Sender: FDA-Public Use
  Company Number: US-MERCK-1105USA03755

PATIENT
  Age: 55 Year
  Sex: Female

DRUGS (9)
  1. FOSAMAX [Suspect]
     Route: 048
     Dates: start: 20070306
  2. METHOTREXATE [Concomitant]
     Route: 065
     Dates: start: 20050101
  3. CALCIUM (UNSPECIFIED) AND VITAMIN D (UNSPECIFIED) [Concomitant]
     Route: 065
  4. FOSAMAX PLUS D [Suspect]
     Indication: OSTEOPOROSIS
     Route: 048
     Dates: start: 20051230, end: 20091001
  5. FOSAMAX [Suspect]
     Route: 048
     Dates: start: 20110705, end: 20110901
  6. FOSAMAX [Suspect]
     Indication: OSTEOPOROSIS
     Route: 048
     Dates: start: 20040101, end: 20051101
  7. PREDNISONE [Concomitant]
     Route: 065
     Dates: start: 20050101, end: 20100101
  8. ENBREL [Concomitant]
     Route: 065
     Dates: start: 20050101
  9. FOLIC ACID [Concomitant]
     Route: 065
     Dates: start: 20050101

REACTIONS (8)
  - IMPAIRED HEALING [None]
  - ARTHRITIS [None]
  - SPLEEN DISORDER [None]
  - ADVERSE EVENT [None]
  - FEMUR FRACTURE [None]
  - CARPAL TUNNEL SYNDROME [None]
  - HYPERTENSION [None]
  - ARTHROPATHY [None]
